FAERS Safety Report 4667456-0 (Version None)
Quarter: 2005Q2

REPORT INFORMATION
  Report Type: 
  Country: None (occurrence: None)
  Receive Date: 20050520
  Receipt Date: 20040330
  Transmission Date: 20051028
  Serious: Yes (Death, Hospitalization)
  Sender: FDA-Public Use
  Company Number: PH-BOEHRINGER INGELHEIM PHARM. INC.-2004-BP-02540RP

PATIENT
  Age: 67 Year
  Sex: Male

DRUGS (4)
  1. AGGRENOX [Suspect]
     Indication: CEREBELLAR INFARCTION
     Dosage: 400/50MG
     Route: 048
     Dates: start: 20031019
  2. NOOTROPIL [Concomitant]
     Indication: CEREBELLAR INFARCTION
     Dates: start: 20031019
  3. MANNITOL [Concomitant]
     Indication: CEREBELLAR INFARCTION
     Dates: start: 20031019
  4. ANTI-TB (NOT SPECIFIED) [Concomitant]
     Indication: TUBERCULOSIS

REACTIONS (3)
  - CEREBRAL HAEMORRHAGE [None]
  - HAEMORRHAGIC INFARCTION [None]
  - PNEUMONIA ASPIRATION [None]
